FAERS Safety Report 19573237 (Version 2)
Quarter: 2021Q3

REPORT INFORMATION
  Report Type: Spontaneous
  Country: IT (occurrence: IT)
  Receive Date: 20210717
  Receipt Date: 20210728
  Transmission Date: 20211014
  Serious: Yes (Life-Threatening, Hospitalization, Other)
  Sender: FDA-Public Use
  Company Number: IT-AUROBINDO-AUR-APL-2021-029579

PATIENT
  Age: 44 Year
  Sex: Female

DRUGS (2)
  1. FLECAINIDE TABLETS [Suspect]
     Active Substance: FLECAINIDE
     Indication: PRODUCT USED FOR UNKNOWN INDICATION
     Dosage: 20 DOSAGE FORM, TOTAL
     Route: 048
  2. NOREPINEPHRINE. [Suspect]
     Active Substance: NOREPINEPHRINE
     Indication: HAEMODYNAMIC INSTABILITY
     Dosage: 0.1 MICROGRAM/KILOGRAM(0.1 MICROGRAM/KILOGRAM, QMINUTE (INFUSION) )
     Route: 065

REACTIONS (15)
  - Ventricular tachycardia [Recovering/Resolving]
  - Jaw fracture [Recovering/Resolving]
  - Blood pressure decreased [Recovering/Resolving]
  - Intentional overdose [Recovered/Resolved]
  - Stress cardiomyopathy [Recovered/Resolved]
  - Suicide attempt [Recovered/Resolved]
  - Electrocardiogram QRS complex prolonged [Recovering/Resolving]
  - Heart rate decreased [Recovering/Resolving]
  - Haemodynamic instability [Recovering/Resolving]
  - Coma scale abnormal [Recovering/Resolving]
  - Syncope [Recovering/Resolving]
  - Metabolic acidosis [Recovering/Resolving]
  - Ventricular fibrillation [Recovering/Resolving]
  - Cardiogenic shock [Recovering/Resolving]
  - Toxicity to various agents [Recovering/Resolving]
